FAERS Safety Report 8164005 (Version 2)
Quarter: 2013Q3

REPORT INFORMATION
  Report Type: Spontaneous
  Country: US (occurrence: US)
  Receive Date: 20110930
  Receipt Date: 20130815
  Transmission Date: 20140515
  Serious: Yes (Other)
  Sender: FDA-Public Use
  Company Number: US-ASTRAZENECA-2010SE40633

PATIENT
  Age: 82 Year
  Sex: Female
  Weight: 74.4 kg

DRUGS (9)
  1. LISINOPRIL [Suspect]
     Route: 048
  2. ARIMIDEX [Suspect]
     Indication: BREAST CANCER
     Route: 048
     Dates: start: 201007, end: 201009
  3. ARIMIDEX [Suspect]
     Indication: BREAST CANCER
     Route: 048
     Dates: start: 201203
  4. ATENOLOL [Concomitant]
     Indication: HYPERTENSION
  5. ACTONEL [Concomitant]
     Indication: BONE DISORDER
  6. VITAMIN B12 [Concomitant]
  7. CALCIUM [Concomitant]
  8. COUMADIN [Concomitant]
  9. SECTRAL [Concomitant]

REACTIONS (7)
  - Breast cancer female [Unknown]
  - Skin odour abnormal [Recovering/Resolving]
  - Bronchitis [Not Recovered/Not Resolved]
  - Chest X-ray abnormal [Not Recovered/Not Resolved]
  - Night sweats [Recovered/Resolved]
  - Cough [Not Recovered/Not Resolved]
  - Drug dose omission [Unknown]
